FAERS Safety Report 7238087-3 (Version None)
Quarter: 2011Q1

REPORT INFORMATION
  Report Type: 
  Country: None (occurrence: None)
  Receive Date: 20110121
  Receipt Date: 20110117
  Transmission Date: 20110831
  Serious: Yes (Other)
  Sender: FDA-Public Use
  Company Number: B0695081A

PATIENT
  Sex: Female

DRUGS (1)
  1. SUMATRIPTAN SUCCINATE [Suspect]
     Indication: MIGRAINE
     Dosage: 50MG PER DAY
     Route: 048
     Dates: start: 20100915, end: 20100915

REACTIONS (4)
  - DIZZINESS [None]
  - TREMOR [None]
  - VOMITING [None]
  - ANURIA [None]
